APPROVED DRUG PRODUCT: NITROGLYCERIN
Active Ingredient: NITROGLYCERIN
Strength: 2%
Dosage Form/Route: OINTMENT;TRANSDERMAL
Application: A087355 | Product #001 | TE Code: AB
Applicant: FOUGERA PHARMACEUTICALS INC
Approved: Jul 8, 1988 | RLD: Yes | RS: Yes | Type: RX